FAERS Safety Report 4456583-9 (Version None)
Quarter: 2004Q3

REPORT INFORMATION
  Report Type: 
  Country: None (occurrence: None)
  Receive Date: 20040921
  Receipt Date: 20040907
  Transmission Date: 20050211
  Serious: Yes (Death)
  Sender: FDA-Public Use
  Company Number: 2004-BP-05406BP (1)

PATIENT
  Age: 78 Year
  Sex: Male

DRUGS (7)
  1. SPIRIVA [Suspect]
     Indication: CHRONIC OBSTRUCTIVE AIRWAYS DISEASE
     Dosage: 18 MCG (18 MCG QD), IH
     Route: 055
     Dates: start: 20040630
  2. SPIRIVA [Suspect]
  3. COUMADIN (WARAFRIN SODIUM) [Concomitant]
  4. DIGOXIN [Concomitant]
  5. SPIRONOLACTONE [Concomitant]
  6. LASIX (LASIX) [Concomitant]
  7. OXYGEN (OXYGEN) [Concomitant]

REACTIONS (4)
  - CONSTIPATION [None]
  - DRUG INEFFECTIVE [None]
  - DRY MOUTH [None]
  - RESPIRATORY DISORDER [None]
